FAERS Safety Report 15106954 (Version 1)
Quarter: 2018Q3

REPORT INFORMATION
  Report Type: Report from Study
  Country: US (occurrence: US)
  Receive Date: 20180704
  Receipt Date: 20180704
  Transmission Date: 20181010
  Serious: Yes (Other)
  Sender: FDA-Public Use
  Company Number: US-SHIRE-US201823347

PATIENT
  Age: 65 Year
  Sex: Female

DRUGS (1)
  1. HUMAN NORMAL IMMUNOGLOBULIN; LIQUID 20 [Suspect]
     Active Substance: HUMAN IMMUNOGLOBULIN G
     Indication: PRIMARY IMMUNODEFICIENCY SYNDROME
     Route: 065

REACTIONS (14)
  - Erythema [Unknown]
  - Procedural complication [Unknown]
  - Sinusitis [Unknown]
  - White blood cell count decreased [Unknown]
  - Fatigue [Unknown]
  - Blood immunoglobulin G decreased [Unknown]
  - Limb mass [Unknown]
  - Herpes zoster [Unknown]
  - Pyrexia [Unknown]
  - Blister [Unknown]
  - Pruritus generalised [Unknown]
  - Infusion site swelling [Unknown]
  - Pain in extremity [Unknown]
  - Rash macular [Unknown]

NARRATIVE: CASE EVENT DATE: 20180625
